FAERS Safety Report 9491237 (Version 3)
Quarter: 2014Q4

REPORT INFORMATION
  Report Type: Spontaneous
  Country: US (occurrence: None)
  Receive Date: 20130827
  Receipt Date: 20141017
  Transmission Date: 20150529
  Serious: Yes (Death, Life-Threatening, Hospitalization)
  Sender: FDA-Public Use
  Company Number: 1713747-2013-99940

PATIENT
  Age: 63 Year
  Sex: Female
  Weight: 71 kg

DRUGS (21)
  1. FRESENIUS BLOODLINES [Concomitant]
  2. COREG [Concomitant]
     Active Substance: CARVEDILOL
  3. MELATONIN [Concomitant]
     Active Substance: MELATONIN
  4. ZOLOFT [Concomitant]
     Active Substance: SERTRALINE HYDROCHLORIDE
  5. FRESENIUS K2 HEMODIALYSIS MACHINE [Concomitant]
  6. ATIVAN [Concomitant]
     Active Substance: LORAZEPAM
  7. LIDODERM [Concomitant]
     Active Substance: LIDOCAINE
  8. LIPITOR [Concomitant]
     Active Substance: ATORVASTATIN CALCIUM
  9. OMERPRAZOLE [Concomitant]
  10. AMBIEN [Concomitant]
     Active Substance: ZOLPIDEM TARTRATE
  11. NEPHRO-VITE [Concomitant]
  12. 0.9% SODIUM CHLORIDE [Suspect]
     Active Substance: SODIUM CHLORIDE
     Indication: HAEMODIALYSIS
     Dates: start: 20130809
  13. OPTIFLUX N160NR DIALYZER [Concomitant]
  14. NATURALYTE BICARB [Concomitant]
  15. KEPPRA [Concomitant]
     Active Substance: LEVETIRACETAM
  16. OXYCODONE [Concomitant]
     Active Substance: OXYCODONE
  17. GRANUFLO 2.OK 2.5CA. [Concomitant]
  18. QUESTRAN [Concomitant]
     Active Substance: CHOLESTYRAMINE
  19. WARFARIN [Concomitant]
     Active Substance: WARFARIN
  20. PLAVIX [Concomitant]
     Active Substance: CLOPIDOGREL BISULFATE
  21. MIRALAX [Concomitant]
     Active Substance: POLYETHYLENE GLYCOL 3350

REACTIONS (8)
  - Respiratory arrest [None]
  - Restlessness [None]
  - Angina pectoris [None]
  - Myocardial ischaemia [None]
  - Anxiety [None]
  - Hyperventilation [None]
  - Mental status changes [None]
  - Accidental overdose [None]

NARRATIVE: CASE EVENT DATE: 20130809
